FAERS Safety Report 8093675-X (Version None)
Quarter: 2012Q1

REPORT INFORMATION
  Report Type: 
  Country: None (occurrence: None)
  Receive Date: 20120129
  Receipt Date: 20111026
  Transmission Date: 20120608
  Serious: No
  Sender: FDA-Public Use
  Company Number: US-ABBOTT-11P-163-0868551-00

PATIENT
  Age: 62 Year
  Sex: Female

DRUGS (4)
  1. LEVOTHYROXINE SODIUM [Concomitant]
     Indication: HYPOTHYROIDISM
     Dosage: IN THE AM
  2. HUMIRA [Suspect]
     Indication: PSORIASIS
     Dosage: INTERRUPTED
     Dates: start: 20110914, end: 20110914
  3. SIMVASTATIN [Concomitant]
     Indication: BLOOD CHOLESTEROL INCREASED
  4. SERTRALINE HYDROCHLORIDE [Concomitant]
     Indication: ANXIETY

REACTIONS (11)
  - ERYTHEMA [None]
  - LABYRINTHITIS [None]
  - HEADACHE [None]
  - SKIN INFECTION [None]
  - HYPERKERATOSIS [None]
  - SKIN FISSURES [None]
  - WOUND SECRETION [None]
  - FEELING HOT [None]
  - PSORIASIS [None]
  - SINUSITIS [None]
  - OTITIS MEDIA [None]
